FAERS Safety Report 5160507-9 (Version None)
Quarter: 2006Q4

REPORT INFORMATION
  Report Type: 
  Country: None (occurrence: None)
  Receive Date: 20061129
  Receipt Date: 20061109
  Transmission Date: 20070319
  Serious: Yes (Hospitalization)
  Sender: FDA-Public Use
  Company Number: FR-BOEHRINGER INGELHEIM GMBH, GERMANY-2006-FF-01230PF

PATIENT
  Sex: Female
  Weight: 52 kg

DRUGS (3)
  1. SPIRIVA [Suspect]
     Indication: BRONCHIECTASIS
     Route: 055
     Dates: start: 20060701, end: 20060910
  2. ZITHROMAX [Concomitant]
     Indication: PSEUDOMONAS INFECTION
     Route: 048
  3. COLISTIN SULFATE [Concomitant]
     Indication: STAPHYLOCOCCAL INFECTION

REACTIONS (4)
  - HAEMOPTYSIS [None]
  - IMMUNE SYSTEM DISORDER [None]
  - INFECTION [None]
  - PLEURAL EFFUSION [None]
